FAERS Safety Report 5334784-5 (Version None)
Quarter: 2007Q2

REPORT INFORMATION
  Report Type: 
  Country: None (occurrence: None)
  Receive Date: 20070525
  Receipt Date: 20070516
  Transmission Date: 20071010
  Serious: Yes (Hospitalization)
  Sender: FDA-Public Use
  Company Number: PHBS2006JP14111

PATIENT
  Age: 30 Year
  Sex: Female

DRUGS (5)
  1. CYCLOSPORINE [Suspect]
     Indication: NEPHROTIC SYNDROME
     Dosage: 150 MG, BID
     Route: 048
  2. MIZORIBINE [Suspect]
     Indication: NEPHROTIC SYNDROME
     Dosage: 150 MEQ/KG, QD
  3. MIZORIBINE [Suspect]
     Dosage: 500 MG, QW2
     Route: 048
     Dates: start: 20051101
  4. MIZORIBINE [Suspect]
     Dosage: 250 MG/D
     Route: 048
  5. PREDNISOLONE [Concomitant]
     Indication: NEPHROTIC SYNDROME
     Dosage: 40 MG/D

REACTIONS (3)
  - BLOOD CREATININE INCREASED [None]
  - CONDITION AGGRAVATED [None]
  - NEPHROTIC SYNDROME [None]
